FAERS Safety Report 20257919 (Version 1)
Quarter: 2021Q4

REPORT INFORMATION
  Report Type: Spontaneous
  Country: US (occurrence: US)
  Receive Date: 20211230
  Receipt Date: 20211230
  Transmission Date: 20220303
  Serious: No
  Sender: FDA-Public Use
  Company Number: US-KYOWAKIRIN-2021BKK021582

PATIENT

DRUGS (2)
  1. CRYSVITA [Suspect]
     Active Substance: BUROSUMAB-TWZA
     Indication: Hereditary hypophosphataemic rickets
     Dosage: STRENGTH 10 AND 30 MG/ML COMBINED TO ACHIEVE DOSE OF 70 MG
     Route: 058
     Dates: start: 20180712
  2. CRYSVITA [Suspect]
     Active Substance: BUROSUMAB-TWZA
     Indication: Hereditary hypophosphataemic rickets
     Dosage: STRENGTH 10 AND 30 MG/ML COMBINED TO ACHIEVE DOSE OF 70 MG
     Route: 058
     Dates: start: 20180712

REACTIONS (1)
  - Intercepted product prescribing error [Unknown]
